FAERS Safety Report 9418782 (Version 1)
Quarter: 2013Q3

REPORT INFORMATION
  Report Type: Spontaneous
  Country: US (occurrence: US)
  Receive Date: 20130725
  Receipt Date: 20130725
  Transmission Date: 20140515
  Serious: No
  Sender: FDA-Public Use
  Company Number: US-PFIZER INC-2013213218

PATIENT
  Age: 58 Year
  Sex: Male
  Weight: 104.31 kg

DRUGS (1)
  1. VIAGRA [Suspect]
     Indication: ERECTILE DYSFUNCTION
     Dosage: 50 MG, AS NEEDED
     Route: 048

REACTIONS (4)
  - Flushing [Unknown]
  - Headache [Unknown]
  - Feeling hot [Unknown]
  - Drug ineffective [Unknown]
